FAERS Safety Report 10735893 (Version 1)
Quarter: 2015Q1

REPORT INFORMATION
  Report Type: Spontaneous
  Country: LB (occurrence: None)
  Receive Date: 20150121
  Receipt Date: 20150121
  Transmission Date: 20150721
  Serious: Yes (Other)
  Sender: FDA-Public Use
  Company Number: LB-DEXPHARM-20150014

PATIENT
  Age: 37 Year
  Sex: Male

DRUGS (1)
  1. DICLOFENAC (EXPOSURE BY SEXUAL INTERCOURSE) [Suspect]
     Active Substance: DICLOFENAC
     Indication: NECK PAIN

REACTIONS (2)
  - Exposure via partner [None]
  - Drug eruption [None]
